FAERS Safety Report 21839261 (Version 1)
Quarter: 2023Q1

REPORT INFORMATION
  Report Type: Spontaneous
  Country: US (occurrence: None)
  Receive Date: 20230107
  Receipt Date: 20230107
  Transmission Date: 20230417
  Serious: No
  Sender: FDA-Public Use
  Company Number: None

PATIENT
  Age: 85 Year
  Sex: Male
  Weight: 101 kg

DRUGS (1)
  1. WARFARIN SODIUM [Suspect]
     Active Substance: WARFARIN SODIUM
     Indication: Mitral valve disease
     Dosage: 2 MG OTHER PO
     Route: 048
     Dates: start: 20180216, end: 20220408

REACTIONS (5)
  - Haematemesis [None]
  - Tachycardia [None]
  - Hypotension [None]
  - Gastrointestinal haemorrhage [None]
  - Intestinal dilatation [None]

NARRATIVE: CASE EVENT DATE: 20220408
